FAERS Safety Report 8075901-6 (Version None)
Quarter: 2012Q1

REPORT INFORMATION
  Report Type: 
  Country: None (occurrence: None)
  Receive Date: 20120125
  Receipt Date: 20120125
  Transmission Date: 20120608
  Serious: No
  Sender: FDA-Public Use
  Company Number: None

PATIENT
  Age: 73 Year
  Sex: Male
  Weight: 53.4 kg

DRUGS (1)
  1. CAPECITABINE [Suspect]
     Indication: BILE DUCT CANCER
     Dosage: 1000 MG BID PO
     Route: 048
     Dates: start: 20111214, end: 20111221

REACTIONS (1)
  - THROMBOCYTOPENIA [None]
